FAERS Safety Report 11420801 (Version 1)
Quarter: 2015Q3

REPORT INFORMATION
  Report Type: Spontaneous
  Country: FR (occurrence: FR)
  Receive Date: 20150826
  Receipt Date: 20150826
  Transmission Date: 20151125
  Serious: Yes (Hospitalization, Other)
  Sender: FDA-Public Use
  Company Number: FR-BRISTOL-MYERS SQUIBB COMPANY-BMS-2015-054854

PATIENT
  Age: 55 Year
  Sex: Male

DRUGS (4)
  1. LEVACT [Suspect]
     Active Substance: BENDAMUSTINE HYDROCHLORIDE
     Indication: LYMPHOMA
     Dosage: 200 MG/M2, QD
     Route: 042
     Dates: start: 20150623, end: 20150624
  2. ETOPOPHOS [Suspect]
     Active Substance: ETOPOSIDE PHOSPHATE
     Indication: LYMPHOMA
     Dosage: 100 MG/M2, BID
     Route: 042
     Dates: start: 20150625, end: 20150628
  3. ARACYTINE [Suspect]
     Active Substance: CYTARABINE
     Indication: LYMPHOMA
     Dosage: 200 MG/M2, BID
     Route: 042
     Dates: start: 20150625, end: 20150628
  4. ALKERAN [Suspect]
     Active Substance: MELPHALAN
     Indication: LYMPHOMA
     Dosage: 140 MG/M2, QD
     Route: 042
     Dates: start: 20150629, end: 20150629

REACTIONS (8)
  - Ascites [Recovering/Resolving]
  - Acute kidney injury [Recovered/Resolved]
  - Thrombocytopenia [Recovering/Resolving]
  - Hyperbilirubinaemia [Recovered/Resolved]
  - Cholestasis [Recovering/Resolving]
  - Liver disorder [Recovered/Resolved]
  - Weight increased [Recovering/Resolving]
  - Colitis [Unknown]

NARRATIVE: CASE EVENT DATE: 20150702
